FAERS Safety Report 23422347 (Version 1)
Quarter: 2024Q1

REPORT INFORMATION
  Report Type: Spontaneous
  Country: US (occurrence: None)
  Receive Date: 20240118
  Receipt Date: 20240118
  Transmission Date: 20240410
  Serious: Yes (Other)
  Sender: FDA-Public Use
  Company Number: None

PATIENT
  Age: 71 Year
  Sex: Female
  Weight: 99 kg

DRUGS (3)
  1. RISEDRONATE SODIUM [Suspect]
     Active Substance: RISEDRONATE SODIUM
     Indication: Osteoporosis
     Dosage: 1 CAPSULE ONCE A MONTH ORAL
     Route: 048
     Dates: start: 20240116, end: 20240116
  2. ROSUVASTATIN [Concomitant]
     Active Substance: ROSUVASTATIN
  3. OMEPRAZOLE [Concomitant]
     Active Substance: OMEPRAZOLE

REACTIONS (3)
  - Muscle spasms [None]
  - Bedridden [None]
  - Movement disorder [None]

NARRATIVE: CASE EVENT DATE: 20240116
